FAERS Safety Report 20222169 (Version 1)
Quarter: 2021Q4

REPORT INFORMATION
  Report Type: Spontaneous
  Country: US (occurrence: US)
  Receive Date: 20211223
  Receipt Date: 20211223
  Transmission Date: 20220303
  Serious: Yes (Other)
  Sender: FDA-Public Use
  Company Number: US-APOTEX-2021AP046667

PATIENT
  Age: 69 Year
  Sex: Female

DRUGS (2)
  1. ALPRAZOLAM [Suspect]
     Active Substance: ALPRAZOLAM
     Indication: Anxiety
     Dosage: 0.5 MILLIGRAM
     Route: 065
  2. ALPRAZOLAM [Suspect]
     Active Substance: ALPRAZOLAM
     Indication: Depression
     Dosage: 2 MILLIGRAM, QD
     Route: 065

REACTIONS (13)
  - Drug use disorder [Unknown]
  - Illusion [Recovering/Resolving]
  - Dysgeusia [Recovering/Resolving]
  - Abnormal dreams [Recovering/Resolving]
  - Nightmare [Recovering/Resolving]
  - Dizziness [Recovering/Resolving]
  - Mood altered [Recovering/Resolving]
  - Palpitations [Recovering/Resolving]
  - Fatigue [Recovering/Resolving]
  - Anxiety [Recovering/Resolving]
  - Muscle twitching [Recovering/Resolving]
  - Hyperaesthesia [Recovering/Resolving]
  - Withdrawal syndrome [Recovering/Resolving]
